FAERS Safety Report 9458233 (Version 2)
Quarter: 2013Q3

REPORT INFORMATION
  Report Type: Spontaneous
  Country: GB (occurrence: None)
  Receive Date: 20130812
  Receipt Date: 20130814
  Transmission Date: 20140515
  Serious: Yes (Other)
  Sender: FDA-Public Use
  Company Number: AUR-APL-2013-06509

PATIENT
  Age: 43 Year
  Sex: Female
  Weight: 90 kg

DRUGS (1)
  1. AMOXICILLIN+CLAVULANIC ACID [Suspect]
     Indication: URINARY TRACT INFECTION
     Route: 048
     Dates: start: 20130718, end: 20130718

REACTIONS (3)
  - Pharyngeal oedema [None]
  - Oedema mouth [None]
  - Maternal exposure during pregnancy [None]
